FAERS Safety Report 10573130 (Version 1)
Quarter: 2014Q4

REPORT INFORMATION
  Report Type: Not Available
  Country: CH (occurrence: CH)
  Receive Date: 20141110
  Receipt Date: 20141110
  Transmission Date: 20150529
  Serious: Yes (Other)
  Sender: FDA-Public Use
  Company Number: CH-BEH-2014046053

PATIENT
  Age: 56 Year
  Sex: Male

DRUGS (12)
  1. FORADIL [Concomitant]
     Active Substance: FORMOTEROL FUMARATE
     Route: 055
  2. PRIVIGEN [Suspect]
     Active Substance: HUMAN IMMUNOGLOBULIN G
  3. COVERSUM [Concomitant]
     Active Substance: PERINDOPRIL
     Route: 048
  4. VITAMIN D3 [Concomitant]
     Active Substance: CHOLECALCIFEROL
     Route: 048
  5. VITAMIN B12 [Concomitant]
     Active Substance: CYANOCOBALAMIN
     Route: 030
  6. PRIVIGEN [Suspect]
     Active Substance: HUMAN IMMUNOGLOBULIN G
  7. AXOTIDE [Concomitant]
     Active Substance: FLUTICASONE PROPIONATE
     Route: 055
  8. PRIVIGEN [Suspect]
     Active Substance: HUMAN IMMUNOGLOBULIN G
     Route: 041
     Dates: start: 20140903, end: 20140907
  9. PRIVIGEN [Suspect]
     Active Substance: HUMAN IMMUNOGLOBULIN G
  10. QUININE SULFATE HAENSELER [Suspect]
     Active Substance: QUININE SULFATE
     Indication: MUSCLE SPASMS
     Dosage: START DATE ??-AUG-2014
     Route: 048
  11. METFIN [Concomitant]
     Active Substance: METFORMIN HYDROCHLORIDE
     Route: 048
  12. PRIVIGEN [Suspect]
     Active Substance: HUMAN IMMUNOGLOBULIN G
     Indication: NERVOUS SYSTEM DISORDER

REACTIONS (6)
  - Rash pruritic [None]
  - Type IV hypersensitivity reaction [None]
  - Eczema [Unknown]
  - Pruritus [Unknown]
  - Blister [Unknown]
  - Dyshidrotic eczema [Unknown]

NARRATIVE: CASE EVENT DATE: 20140913
